FAERS Safety Report 4752281-2 (Version None)
Quarter: 2005Q3

REPORT INFORMATION
  Report Type: 
  Country: None (occurrence: None)
  Receive Date: 20050825
  Receipt Date: 20050815
  Transmission Date: 20060218
  Serious: Yes (Other)
  Sender: FDA-Public Use
  Company Number: US-GLAXOSMITHKLINE-A0570214A

PATIENT
  Age: 60 Year
  Sex: Female
  Weight: 68 kg

DRUGS (3)
  1. DEBROX [Suspect]
     Route: 001
     Dates: start: 20050809, end: 20050815
  2. MULTI-VITAMIN [Concomitant]
  3. ASCORBIC ACID [Concomitant]

REACTIONS (1)
  - DEAFNESS UNILATERAL [None]
